FAERS Safety Report 8975667 (Version 2)
Quarter: 2013Q1

REPORT INFORMATION
  Report Type: Spontaneous
  Country: DE (occurrence: DE)
  Receive Date: 20121219
  Receipt Date: 20130108
  Transmission Date: 20140127
  Serious: Yes (Life-Threatening, Hospitalization)
  Sender: FDA-Public Use
  Company Number: DE-ELI_LILLY_AND_COMPANY-DE201206001538

PATIENT
  Age: 71 Year
  Sex: Female
  Weight: 65 kg

DRUGS (4)
  1. ALIMTA [Suspect]
     Indication: BRONCHIAL CARCINOMA
     Dosage: UNK, UNKNOWN
     Route: 042
     Dates: start: 20120321, end: 20120419
  2. GRANISETRON [Concomitant]
     Indication: NAUSEA
     Dosage: 3 UNK, UNK
     Dates: start: 20120321
  3. VITAMIN B12 [Concomitant]
     Dosage: UNK, MONTHLY (1/M)
  4. FOLSAN [Concomitant]
     Dosage: 0.4 MG, QD

REACTIONS (4)
  - Neutropenia [Recovered/Resolved]
  - General physical condition abnormal [Recovered/Resolved]
  - Inflammation [Recovered/Resolved]
  - Pruritus [Recovered/Resolved]
